FAERS Safety Report 6380294-6 (Version None)
Quarter: 2009Q3

REPORT INFORMATION
  Report Type: 
  Country: None (occurrence: None)
  Receive Date: 20090929
  Receipt Date: 20090917
  Transmission Date: 20100115
  Serious: Yes (Other)
  Sender: FDA-Public Use
  Company Number: GB-ROCHE-657385

PATIENT
  Age: 37 Year
  Sex: Female

DRUGS (8)
  1. TAMIFLU [Suspect]
     Indication: DRUG USE FOR UNKNOWN INDICATION
     Route: 065
     Dates: start: 20090727, end: 20090731
  2. ECHINACEA [Concomitant]
     Dosage: ONLY ONE DOSE TAKEN.
  3. PREMARIN [Concomitant]
     Dosage: COMBINATION OF HRT TAKEN FOR 3 YEARS
  4. PREMIQUE [Concomitant]
     Dosage: COMBINATION OF HRT TAKEN FOR 3 YEARS
  5. PARACETAMOL [Concomitant]
  6. IBUPROFEN [Concomitant]
  7. PROCHLORPERAZINE MALEATE [Concomitant]
  8. AMOXICILLIN [Concomitant]
     Dates: start: 20090731

REACTIONS (3)
  - HEPATIC ENZYME ABNORMAL [None]
  - JAUNDICE CHOLESTATIC [None]
  - VOMITING [None]
